FAERS Safety Report 9238032 (Version 1)
Quarter: 2013Q2

REPORT INFORMATION
  Report Type: Spontaneous
  Country: AR (occurrence: AR)
  Receive Date: 20130418
  Receipt Date: 20130418
  Transmission Date: 20140414
  Serious: Yes (Other)
  Sender: FDA-Public Use
  Company Number: AR-JNJFOC-20130405488

PATIENT
  Age: 47 Year
  Sex: Female

DRUGS (7)
  1. REMICADE [Suspect]
     Indication: RHEUMATOID ARTHRITIS
     Route: 042
     Dates: start: 200911
  2. DICLOFENAC [Concomitant]
     Route: 065
  3. HYDROXYCHLOROQUINE SULPHATE [Concomitant]
     Route: 065
  4. METHOTREXATE [Concomitant]
     Route: 065
  5. INDOMETHACIN [Concomitant]
     Route: 065
  6. BETAMETHASONE [Concomitant]
     Route: 065
  7. VITAMIN B 12 [Concomitant]
     Route: 065

REACTIONS (4)
  - Red blood cell count increased [Not Recovered/Not Resolved]
  - Local swelling [Not Recovered/Not Resolved]
  - Therapeutic response decreased [Not Recovered/Not Resolved]
  - Pain [Not Recovered/Not Resolved]
